FAERS Safety Report 17450496 (Version 1)
Quarter: 2020Q1

REPORT INFORMATION
  Report Type: Spontaneous
  Country: US (occurrence: US)
  Receive Date: 20200221
  Receipt Date: 20200221
  Transmission Date: 20200409
  Serious: Yes (Other)
  Sender: FDA-Public Use
  Company Number: None

PATIENT
  Age: 60 Year
  Sex: Male
  Weight: 87.3 kg

DRUGS (1)
  1. TAMSULOSIN HCL 0.4 MG [Suspect]
     Active Substance: TAMSULOSIN HYDROCHLORIDE
     Indication: URINARY INCONTINENCE
     Dosage: ?          QUANTITY:1 CAPSULE(S);?
     Route: 048
     Dates: start: 20200220, end: 20200220

REACTIONS (7)
  - Dry mouth [None]
  - Dysphagia [None]
  - Heart rate increased [None]
  - Oropharyngeal pain [None]
  - Muscle spasms [None]
  - Dehydration [None]
  - Headache [None]

NARRATIVE: CASE EVENT DATE: 20200220
